FAERS Safety Report 8201351-5 (Version None)
Quarter: 2012Q1

REPORT INFORMATION
  Report Type: 
  Country: None (occurrence: None)
  Receive Date: 20120312
  Receipt Date: 20120305
  Transmission Date: 20120608
  Serious: Yes (Hospitalization)
  Sender: FDA-Public Use
  Company Number: JP-PFIZER INC-2012026525

PATIENT
  Sex: Male
  Weight: 50 kg

DRUGS (13)
  1. NESPO [Suspect]
     Indication: NEPHROGENIC ANAEMIA
     Dosage: 10 UG, UNK
     Route: 042
     Dates: start: 20091221
  2. LASIX [Concomitant]
     Dosage: 80 MG, 1X/DAY
     Route: 048
  3. CONIEL [Concomitant]
     Dosage: 4 MG, 1X/DAY
     Route: 048
  4. MAGNESIUM OXIDE HEAVY [Concomitant]
     Dosage: 0.2 G, 3X/DAY
     Route: 048
  5. VARENICLINE TARTRATE [Suspect]
     Indication: SMOKING CESSATION THERAPY
     Dosage: 0.5 MG, ALTERNATE DAY (THREE TIMES A WEEK ON NON-HAEMODIALYSIS DAYS)
     Route: 048
     Dates: start: 20100301, end: 20100613
  6. ROCALTROL [Concomitant]
     Indication: HYPERPARATHYROIDISM
     Dosage: 0.5 UG, WEEKLY
     Route: 042
     Dates: start: 20100524
  7. SELBEX [Concomitant]
     Dosage: 50 MG, 3X/DAY
     Route: 048
     Dates: start: 20100226
  8. GLUFAST [Concomitant]
     Dosage: 10 MG, 3X/DAY
     Route: 048
  9. RISUMIC [Concomitant]
     Dosage: 10 MG, 1X/DAY
     Route: 048
  10. JUVELA N [Concomitant]
     Dosage: 200 MG, 2X/DAY
     Route: 048
  11. PLETAL [Concomitant]
     Dosage: 100 MG, 1X/DAY
     Route: 048
  12. RABEPRAZOLE SODIUM [Concomitant]
     Dosage: 10 MG, 1X/DAY
     Route: 048
  13. MYONAL [Concomitant]
     Dosage: 50 MG, 2X/DAY
     Route: 048

REACTIONS (4)
  - CARDIAC FAILURE CONGESTIVE [None]
  - ANGINA PECTORIS [None]
  - WEIGHT DECREASED [None]
  - NAUSEA [None]
